FAERS Safety Report 9452468 (Version 1)
Quarter: 2013Q3

REPORT INFORMATION
  Report Type: Spontaneous
  Country: US (occurrence: US)
  Receive Date: 20130812
  Receipt Date: 20130812
  Transmission Date: 20140515
  Serious: Yes (Hospitalization)
  Sender: FDA-Public Use
  Company Number: US-JNJFOC-20130718977

PATIENT
  Sex: Male

DRUGS (44)
  1. LEVOFLOXACIN [Suspect]
     Indication: PRODUCT USED FOR UNKNOWN INDICATION
     Route: 065
  2. LEVOFLOXACIN [Suspect]
     Indication: GASTROINTESTINAL INFECTION
     Route: 065
  3. LEVOFLOXACIN [Suspect]
     Indication: RESPIRATORY TRACT INFECTION
     Route: 065
  4. LEVOFLOXACIN [Suspect]
     Indication: GENITOURINARY TRACT INFECTION
     Route: 065
  5. LEVOFLOXACIN [Suspect]
     Indication: SKIN INFECTION
     Route: 065
  6. LEVOFLOXACIN [Suspect]
     Indication: OSTEOMYELITIS
     Route: 065
  7. LEVOFLOXACIN [Suspect]
     Indication: ARTHRITIS INFECTIVE
     Route: 065
  8. GATIFLOXACIN [Suspect]
     Indication: PRODUCT USED FOR UNKNOWN INDICATION
     Route: 065
  9. GATIFLOXACIN [Suspect]
     Indication: GASTROINTESTINAL INFECTION
     Route: 065
  10. GATIFLOXACIN [Suspect]
     Indication: RESPIRATORY TRACT INFECTION
     Route: 065
  11. GATIFLOXACIN [Suspect]
     Indication: GENITOURINARY TRACT INFECTION
     Route: 065
  12. GATIFLOXACIN [Suspect]
     Indication: SKIN INFECTION
     Route: 065
  13. GATIFLOXACIN [Suspect]
     Indication: OSTEOMYELITIS
     Route: 065
  14. GATIFLOXACIN [Suspect]
     Indication: ARTHRITIS INFECTIVE
     Route: 065
  15. GEMIFLOXACIN [Suspect]
     Indication: PRODUCT USED FOR UNKNOWN INDICATION
     Route: 065
  16. GEMIFLOXACIN [Suspect]
     Indication: GASTROINTESTINAL INFECTION
     Route: 065
  17. GEMIFLOXACIN [Suspect]
     Indication: RESPIRATORY TRACT INFECTION
     Route: 065
  18. GEMIFLOXACIN [Suspect]
     Indication: GENITOURINARY TRACT INFECTION
     Route: 065
  19. GEMIFLOXACIN [Suspect]
     Indication: SKIN INFECTION
     Route: 065
  20. GEMIFLOXACIN [Suspect]
     Indication: OSTEOMYELITIS
     Route: 065
  21. GEMIFLOXACIN [Suspect]
     Indication: ARTHRITIS INFECTIVE
     Route: 065
  22. MOXIFLOXACIN [Suspect]
     Indication: PRODUCT USED FOR UNKNOWN INDICATION
     Route: 065
  23. MOXIFLOXACIN [Suspect]
     Indication: GASTROINTESTINAL INFECTION
     Route: 065
  24. MOXIFLOXACIN [Suspect]
     Indication: RESPIRATORY TRACT INFECTION
     Route: 065
  25. MOXIFLOXACIN [Suspect]
     Indication: GENITOURINARY TRACT INFECTION
     Route: 065
  26. MOXIFLOXACIN [Suspect]
     Indication: SKIN INFECTION
     Route: 065
  27. MOXIFLOXACIN [Suspect]
     Indication: OSTEOMYELITIS
     Route: 065
  28. MOXIFLOXACIN [Suspect]
     Indication: ARTHRITIS INFECTIVE
     Route: 065
  29. NORFLOXACIN [Suspect]
     Indication: PRODUCT USED FOR UNKNOWN INDICATION
     Route: 065
  30. NORFLOXACIN [Suspect]
     Indication: GASTROINTESTINAL INFECTION
     Route: 065
  31. NORFLOXACIN [Suspect]
     Indication: RESPIRATORY TRACT INFECTION
     Route: 065
  32. NORFLOXACIN [Suspect]
     Indication: GENITOURINARY TRACT INFECTION
     Route: 065
  33. NORFLOXACIN [Suspect]
     Indication: SKIN INFECTION
     Route: 065
  34. NORFLOXACIN [Suspect]
     Indication: OSTEOMYELITIS
     Route: 065
  35. NORFLOXACIN [Suspect]
     Indication: ARTHRITIS INFECTIVE
     Route: 065
  36. CIPROFLOXACIN [Suspect]
     Indication: PRODUCT USED FOR UNKNOWN INDICATION
     Route: 065
  37. CIPROFLOXACIN [Suspect]
     Indication: GASTROINTESTINAL INFECTION
     Route: 065
  38. CIPROFLOXACIN [Suspect]
     Indication: RESPIRATORY TRACT INFECTION
     Route: 065
  39. CIPROFLOXACIN [Suspect]
     Indication: GENITOURINARY TRACT INFECTION
     Route: 065
  40. CIPROFLOXACIN [Suspect]
     Indication: SKIN INFECTION
     Route: 065
  41. CIPROFLOXACIN [Suspect]
     Indication: OSTEOMYELITIS
     Route: 065
  42. CIPROFLOXACIN [Suspect]
     Indication: ARTHRITIS INFECTIVE
     Route: 065
  43. ANGIOTENSIN RECEPTOR BLOCKER NOS [Interacting]
     Indication: PRODUCT USED FOR UNKNOWN INDICATION
     Route: 065
  44. ANGIOTENSIN-CONVERTING ENZYME INHIBITORS [Interacting]
     Indication: PRODUCT USED FOR UNKNOWN INDICATION
     Route: 065

REACTIONS (2)
  - Renal failure acute [Unknown]
  - Drug interaction [Unknown]
